FAERS Safety Report 6298074-9 (Version None)
Quarter: 2009Q3

REPORT INFORMATION
  Report Type: 
  Country: None (occurrence: None)
  Receive Date: 20090805
  Receipt Date: 20090726
  Transmission Date: 20100115
  Serious: Yes (Hospitalization)
  Sender: FDA-Public Use
  Company Number: DE-ABBOTT-09P-062-0587229-00

PATIENT
  Sex: Male
  Weight: 78 kg

DRUGS (3)
  1. HUMIRA [Suspect]
     Indication: CROHN'S DISEASE
     Route: 058
     Dates: start: 20081113, end: 20090602
  2. PREDNISOLONE [Concomitant]
     Indication: CROHN'S DISEASE
     Dates: start: 20050101, end: 20081120
  3. AZATHIOPRIN [Concomitant]
     Indication: CROHN'S DISEASE
     Dates: start: 20050101, end: 20081120

REACTIONS (2)
  - PUSTULAR PSORIASIS [None]
  - PYREXIA [None]
